FAERS Safety Report 13374213 (Version 1)
Quarter: 2017Q1

REPORT INFORMATION
  Report Type: Spontaneous
  Country: IT (occurrence: IT)
  Receive Date: 20170327
  Receipt Date: 20170327
  Transmission Date: 20170429
  Serious: Yes (Hospitalization)
  Sender: FDA-Public Use
  Company Number: IT-PFIZER INC-2015478301

PATIENT
  Age: 62 Year
  Sex: Male
  Weight: 81 kg

DRUGS (5)
  1. OCTREOTIDE LAR [Concomitant]
     Active Substance: OCTREOTIDE
     Dosage: UNK
     Dates: start: 2004
  2. SOMAVERT [Suspect]
     Active Substance: PEGVISOMANT
     Indication: ACROMEGALY
     Dosage: 15 MG, 1X/DAY, 7 INJECTIONS PER WEEK
     Dates: start: 2011
  3. OCTREOTIDE LAR [Concomitant]
     Active Substance: OCTREOTIDE
     Dosage: UNK
     Dates: start: 20081108
  4. OCTREOTIDE LAR [Concomitant]
     Active Substance: OCTREOTIDE
     Dosage: UNK
     Dates: start: 20100714, end: 2011
  5. OCTREOTIDE LAR [Concomitant]
     Active Substance: OCTREOTIDE
     Dosage: UNK
     Dates: start: 2000, end: 2003

REACTIONS (1)
  - Benign prostatic hyperplasia [Recovered/Resolved]

NARRATIVE: CASE EVENT DATE: 20140623
